FAERS Safety Report 10712148 (Version 3)
Quarter: 2015Q1

REPORT INFORMATION
  Report Type: Report from Study
  Country: US (occurrence: US)
  Receive Date: 20150114
  Receipt Date: 20150211
  Transmission Date: 20150721
  Serious: Yes (Hospitalization)
  Sender: FDA-Public Use
  Company Number: US-ACTELION-A-US2014-109421

PATIENT
  Age: 81 Year
  Sex: Male

DRUGS (3)
  1. MACITENTAN [Suspect]
     Active Substance: MACITENTAN
     Indication: PULMONARY ARTERIAL HYPERTENSION
     Dosage: 10 MG, QD
     Route: 048
     Dates: start: 20141130, end: 20150109
  2. TYVASO [Concomitant]
     Active Substance: TREPROSTINIL
     Dosage: 9 PUFFS, QID
     Dates: start: 20141120, end: 20150107
  3. ADCIRCA [Concomitant]
     Active Substance: TADALAFIL

REACTIONS (11)
  - Cardiac pacemaker insertion [Recovering/Resolving]
  - Dyspnoea [Recovered/Resolved]
  - Cardiac ablation [Recovering/Resolving]
  - Headache [Unknown]
  - Macular degeneration [Unknown]
  - Heart rate decreased [Recovered/Resolved]
  - Fatigue [Unknown]
  - Transfusion [Unknown]
  - Abdominal pain upper [Recovered/Resolved]
  - Decreased appetite [Unknown]
  - Atrial fibrillation [Recovering/Resolving]

NARRATIVE: CASE EVENT DATE: 20141231
